FAERS Safety Report 6168928-2 (Version None)
Quarter: 2009Q2

REPORT INFORMATION
  Report Type: 
  Country: None (occurrence: None)
  Receive Date: 20090427
  Receipt Date: 20090416
  Transmission Date: 20091009
  Serious: Yes (Other)
  Sender: FDA-Public Use
  Company Number: PHHY2009IT11492

PATIENT
  Sex: Female

DRUGS (5)
  1. METHERGINE [Suspect]
     Dosage: UNK
     Route: 048
     Dates: start: 20080208
  2. AMOXICILLIN [Suspect]
     Indication: ENDOCERVICAL CURETTAGE
     Dosage: 3 POSOLOGIC UNITS
     Route: 048
     Dates: start: 20080208, end: 20080214
  3. IPNOVEL [Concomitant]
  4. TORADOL [Concomitant]
  5. PROPOFOL [Concomitant]

REACTIONS (3)
  - ASTHENIA [None]
  - BRADYCARDIA [None]
  - HYPERTENSION [None]
